FAERS Safety Report 11599967 (Version 1)
Quarter: 2015Q4

REPORT INFORMATION
  Report Type: Spontaneous
  Country: US (occurrence: US)
  Receive Date: 20151006
  Receipt Date: 20151006
  Transmission Date: 20160304
  Serious: No
  Sender: FDA-Public Use
  Company Number: US-AMGEN-USASP2015029526

PATIENT
  Age: 60 Year
  Sex: Female

DRUGS (1)
  1. PROLIA [Suspect]
     Active Substance: DENOSUMAB
     Indication: PRODUCT USED FOR UNKNOWN INDICATION
     Dosage: UNK
     Route: 065

REACTIONS (9)
  - Gingival swelling [Unknown]
  - Pain in jaw [Unknown]
  - Pubic pain [Unknown]
  - Pelvic pain [Unknown]
  - Local swelling [Unknown]
  - Arthralgia [Unknown]
  - Feeling hot [Unknown]
  - Lip swelling [Unknown]
  - Pain in extremity [Unknown]
